FAERS Safety Report 19801610 (Version 2)
Quarter: 2022Q1

REPORT INFORMATION
  Report Type: Other
  Country: CA (occurrence: CA)
  Receive Date: 20210907
  Receipt Date: 20220317
  Transmission Date: 20220423
  Serious: Yes (Other)
  Sender: FDA-Public Use
  Company Number: CA-CELLTRION INC.-2021CA011870

PATIENT

DRUGS (16)
  1. RITUXIMAB [Suspect]
     Active Substance: RITUXIMAB
     Indication: Scleritis
     Dosage: 1000.0 MILLIGRAM
     Route: 041
  2. BENADRYL [Concomitant]
     Active Substance: DIPHENHYDRAMINE HYDROCHLORIDE
     Dosage: 50.0 MILLIGRAM
     Route: 048
  3. GLICLAZIDE [Concomitant]
     Active Substance: GLICLAZIDE
  4. GLICLAZIDE [Concomitant]
     Active Substance: GLICLAZIDE
  5. HYDROXYCHLOROQUINE SULFATE [Concomitant]
     Active Substance: HYDROXYCHLOROQUINE SULFATE
  6. IRON [Concomitant]
     Active Substance: IRON
  7. LEVOTHYROXINE SODIUM [Concomitant]
     Active Substance: LEVOTHYROXINE SODIUM
     Dosage: UNK
  8. LEVOTHYROXINE SODIUM [Concomitant]
     Active Substance: LEVOTHYROXINE SODIUM
     Dosage: UNK
     Route: 065
  9. LISINOPRIL [Concomitant]
     Active Substance: LISINOPRIL
     Indication: Blood pressure abnormal
  10. LISINOPRIL [Concomitant]
     Active Substance: LISINOPRIL
     Indication: Blood pressure abnormal
  11. METHOTREXATE [Concomitant]
     Active Substance: METHOTREXATE
     Route: 048
  12. METHOTREXATE [Concomitant]
     Active Substance: METHOTREXATE
     Route: 037
  13. METHYLPREDNISOLONE [Concomitant]
     Active Substance: METHYLPREDNISOLONE
     Indication: Premedication
  14. METHYLPREDNISOLONE SODIUM SUCCINATE [Concomitant]
     Active Substance: METHYLPREDNISOLONE SODIUM SUCCINATE
     Indication: Premedication
     Dosage: 100.0 MILLIGRAM
     Route: 042
  15. DOCONEXENT\ICOSAPENT [Concomitant]
     Active Substance: DOCONEXENT\ICOSAPENT
  16. TYLENOL [Concomitant]
     Active Substance: ACETAMINOPHEN
     Dosage: 650.0 MILLIGRAM
     Route: 048

REACTIONS (4)
  - Cyst [Recovered/Resolved]
  - Food poisoning [Recovered/Resolved]
  - Abdominal pain [Recovered/Resolved]
  - Off label use [Unknown]
